FAERS Safety Report 10018958 (Version 1)
Quarter: 2014Q1

REPORT INFORMATION
  Report Type: Spontaneous
  Country: US (occurrence: US)
  Receive Date: 20140318
  Receipt Date: 20140318
  Transmission Date: 20141002
  Serious: Yes (Death)
  Sender: FDA-Public Use
  Company Number: US-GLAXOSMITHKLINE-A1065253A

PATIENT
  Age: 73 Year
  Sex: Male

DRUGS (1)
  1. ARIXTRA [Suspect]
     Indication: GASTRIC CANCER
     Dosage: 10MG UNKNOWN
     Route: 042
     Dates: start: 20121128

REACTIONS (1)
  - Death [Fatal]
